FAERS Safety Report 14428579 (Version 1)
Quarter: 2018Q1

REPORT INFORMATION
  Report Type: Spontaneous
  Country: BE (occurrence: US)
  Receive Date: 20180123
  Receipt Date: 20180123
  Transmission Date: 20180509
  Serious: Yes (Hospitalization)
  Sender: FDA-Public Use
  Company Number: None

PATIENT
  Age: 23 Year
  Sex: Male
  Weight: 73.1 kg

DRUGS (4)
  1. IFOSFAMIDE. [Suspect]
     Active Substance: IFOSFAMIDE
     Route: 042
     Dates: end: 20180116
  2. TAXOL [Suspect]
     Active Substance: PACLITAXEL
     Route: 042
     Dates: end: 20180112
  3. G-CSF (FILGRASTIM, AMGEN) [Suspect]
     Active Substance: FILGRASTIM
     Route: 058
     Dates: end: 20180121
  4. CISPLATIN. [Suspect]
     Active Substance: CISPLATIN
     Route: 042
     Dates: end: 20180116

REACTIONS (3)
  - Platelet count decreased [None]
  - Respiratory tract infection [None]
  - Febrile neutropenia [None]

NARRATIVE: CASE EVENT DATE: 20180121
